FAERS Safety Report 20375294 (Version 1)
Quarter: 2022Q1

REPORT INFORMATION
  Report Type: Spontaneous
  Country: US (occurrence: US)
  Receive Date: 20220125
  Receipt Date: 20220125
  Transmission Date: 20220424
  Serious: Yes (Death, Other)
  Sender: FDA-Public Use
  Company Number: US-AMGEN-USASP2022008504

PATIENT

DRUGS (2)
  1. FILGRASTIM [Suspect]
     Active Substance: FILGRASTIM
     Indication: Neutropenia
     Route: 065
  2. FILGRASTIM [Suspect]
     Active Substance: FILGRASTIM
     Indication: Off label use

REACTIONS (11)
  - Death [Fatal]
  - Neutropenia [Unknown]
  - Cytomegalovirus infection [Unknown]
  - Fungal infection [Unknown]
  - Nocardiosis [Unknown]
  - Atypical mycobacterial infection [Unknown]
  - Post transplant lymphoproliferative disorder [Unknown]
  - Sepsis [Unknown]
  - Cytomegalovirus syndrome [Unknown]
  - Cytomegalovirus gastrointestinal infection [Unknown]
  - Off label use [Unknown]
